FAERS Safety Report 13448134 (Version 1)
Quarter: 2017Q2

REPORT INFORMATION
  Report Type: Spontaneous
  Country: SE (occurrence: SE)
  Receive Date: 20170417
  Receipt Date: 20170417
  Transmission Date: 20170830
  Serious: Yes (Hospitalization)
  Sender: FDA-Public Use
  Company Number: SE-PFIZER INC-2017161728

PATIENT
  Age: 74 Year
  Sex: Female

DRUGS (10)
  1. DUROFERON [Suspect]
     Active Substance: FERROUS SULFATE
     Dosage: 700 MILLIGRAM(S);TOTAL
     Dates: start: 20150629, end: 20150629
  2. FURIX [Suspect]
     Active Substance: FUROSEMIDE
     Dosage: 280 MILLIGRAM(S);TOTAL
     Dates: start: 20150629, end: 20150629
  3. KALEORID [Suspect]
     Active Substance: POTASSIUM CHLORIDE
     Indication: HYPOKALAEMIA
     Dosage: 10500 MILLIGRAM(S);TOTAL
     Route: 065
     Dates: start: 20150629, end: 20150629
  4. LETROZOLE. [Suspect]
     Active Substance: LETROZOLE
     Dosage: 17.5 MILLIGRAM(S);TOTAL
     Route: 048
     Dates: start: 20150629, end: 20150629
  5. WARAN [Concomitant]
     Active Substance: WARFARIN SODIUM
     Dosage: UNK
  6. PRIMPERAN [Concomitant]
     Active Substance: METOCLOPRAMIDE HYDROCHLORIDE
     Dosage: UNK
  7. IMOVANE [Concomitant]
     Active Substance: ZOPICLONE
     Dosage: UNK
  8. CORDARONE [Suspect]
     Active Substance: AMIODARONE HYDROCHLORIDE
     Indication: ATRIAL FIBRILLATION
     Dosage: 1400 MILLIGRAM(S);TOTAL
     Route: 048
     Dates: start: 20150629, end: 20150629
  9. BISOPROLOL [Suspect]
     Active Substance: BISOPROLOL
     Indication: ARRHYTHMIA
     Dosage: 35 MILLIGRAM(S);TOTAL
     Dates: start: 20150629, end: 20150629
  10. CANDESARTAN. [Suspect]
     Active Substance: CANDESARTAN
     Dosage: 14 MILLIGRAM(S);TOTAL
     Route: 048
     Dates: start: 20150629, end: 20150629

REACTIONS (3)
  - Medication error [Unknown]
  - Hyperkalaemia [Recovered/Resolved]
  - Accidental overdose [Unknown]

NARRATIVE: CASE EVENT DATE: 20150629
